FAERS Safety Report 4967010-7 (Version None)
Quarter: 2006Q1

REPORT INFORMATION
  Report Type: 
  Country: None (occurrence: None)
  Receive Date: 20060201
  Receipt Date: 20051227
  Transmission Date: 20060701
  Serious: No
  Sender: FDA-Public Use
  Company Number: 2005PV006292

PATIENT
  Age: 61 Year
  Sex: Female
  Weight: 62.5964 kg

DRUGS (7)
  1. BYETTA [Suspect]
     Indication: DIABETES MELLITUS NON-INSULIN-DEPENDENT
     Dosage: 5 MCG; BID; SC
     Route: 058
     Dates: start: 20051215
  2. PRANDIA [Concomitant]
  3. AVANDIA [Concomitant]
  4. METFORMIN [Concomitant]
  5. ZOCOR [Concomitant]
  6. ACCUPRIL [Concomitant]
  7. MAGNESIUM [Concomitant]

REACTIONS (9)
  - DECREASED APPETITE [None]
  - DRUG INEFFECTIVE [None]
  - EXOSTOSIS [None]
  - FATIGUE [None]
  - HUNGER [None]
  - HYPOGLYCAEMIA [None]
  - LETHARGY [None]
  - MUSCLE SPASMS [None]
  - WEIGHT DECREASED [None]
